FAERS Safety Report 4521581-3 (Version None)
Quarter: 2004Q4

REPORT INFORMATION
  Report Type: 
  Country: None (occurrence: None)
  Receive Date: 20041208
  Receipt Date: 20041208
  Transmission Date: 20050328
  Serious: Yes (Other)
  Sender: FDA-Public Use
  Company Number: None

PATIENT
  Age: 12 Year
  Sex: Female

DRUGS (1)
  1. INFLIXIMAB [Suspect]
     Indication: COLITIS ULCERATIVE
     Dosage: 250MG   X1  INTRAVENOUS
     Route: 042
     Dates: start: 20040831, end: 20040831

REACTIONS (9)
  - ABDOMINAL PAIN [None]
  - CONDITION AGGRAVATED [None]
  - DISEASE RECURRENCE [None]
  - DYSPNOEA [None]
  - FISTULA [None]
  - INFLAMMATORY BOWEL DISEASE [None]
  - INFUSION RELATED REACTION [None]
  - PYREXIA [None]
  - VOMITING [None]
